FAERS Safety Report 25435787 (Version 1)
Quarter: 2025Q2

REPORT INFORMATION
  Report Type: Report from Study
  Country: GB (occurrence: GB)
  Receive Date: 20250613
  Receipt Date: 20250613
  Transmission Date: 20250716
  Serious: Yes (Other)
  Sender: AMGEN
  Company Number: GB-002147023-NVSC2025GB077484

PATIENT
  Age: 44 Year
  Sex: Female

DRUGS (1)
  1. AIMOVIG [Suspect]
     Active Substance: ERENUMAB-AOOE
     Indication: Migraine
     Route: 058
     Dates: start: 202501

REACTIONS (6)
  - Facial paralysis [Unknown]
  - Migraine [Unknown]
  - Headache [Unknown]
  - Facial pain [Unknown]
  - Dysarthria [Unknown]
  - Product availability issue [Unknown]
